FAERS Safety Report 12841177 (Version 5)
Quarter: 2017Q1

REPORT INFORMATION
  Report Type: Spontaneous
  Country: US (occurrence: US)
  Receive Date: 20161012
  Receipt Date: 20170123
  Transmission Date: 20170428
  Serious: No
  Sender: FDA-Public Use
  Company Number: US-PFIZER INC-2016476701

PATIENT
  Age: 65 Year
  Sex: Female

DRUGS (3)
  1. AMIODARONE HCL [Suspect]
     Active Substance: AMIODARONE HYDROCHLORIDE
     Dosage: UNK
     Route: 065
     Dates: start: 20150824
  2. ELIQUIS [Suspect]
     Active Substance: APIXABAN
     Indication: CEREBROVASCULAR ACCIDENT PROPHYLAXIS
     Dosage: 5 MG, BID
     Route: 065
     Dates: start: 20150824
  3. NADOLOL. [Suspect]
     Active Substance: NADOLOL
     Dosage: UNK
     Route: 065
     Dates: start: 20150824

REACTIONS (2)
  - Headache [Unknown]
  - Contusion [Unknown]
